FAERS Safety Report 10588599 (Version 2)
Quarter: 2015Q3

REPORT INFORMATION
  Report Type: Spontaneous
  Country: US (occurrence: US)
  Receive Date: 20141117
  Receipt Date: 20150721
  Transmission Date: 20151125
  Serious: Yes (Hospitalization)
  Sender: FDA-Public Use
  Company Number: US-BAYER-2014-168507

PATIENT
  Age: 23 Year
  Sex: Female
  Weight: 58.96 kg

DRUGS (2)
  1. MIRENA [Suspect]
     Active Substance: LEVONORGESTREL
     Indication: CONTRACEPTION
     Dosage: 20 MCG/24HR, CONT
     Route: 015
     Dates: start: 20100127, end: 20130313
  2. DEPO-PROVERA [Concomitant]
     Active Substance: MEDROXYPROGESTERONE ACETATE
     Dosage: UNK

REACTIONS (8)
  - Dyspareunia [None]
  - Device issue [None]
  - Uterine perforation [None]
  - Abdominal pain [None]
  - Oligomenorrhoea [None]
  - Emotional distress [None]
  - Device dislocation [None]
  - Injury [None]

NARRATIVE: CASE EVENT DATE: 20100127
